FAERS Safety Report 12871934 (Version 1)
Quarter: 2016Q4

REPORT INFORMATION
  Report Type: Spontaneous
  Country: US (occurrence: US)
  Receive Date: 20161021
  Receipt Date: 20161021
  Transmission Date: 20170207
  Serious: No
  Sender: FDA-Public Use
  Company Number: US-PURDUE-USA-2016-0132381

PATIENT
  Sex: Female
  Weight: 80.74 kg

DRUGS (1)
  1. OXYCODONE HCL CR TABLETS (SIMILAR TO NDA 22-272) [Suspect]
     Active Substance: OXYCODONE HYDROCHLORIDE
     Indication: RHEUMATOID ARTHRITIS
     Dosage: 5 MG, TID
     Route: 048
     Dates: start: 2011

REACTIONS (2)
  - Bowel movement irregularity [Unknown]
  - Intentional product use issue [Unknown]
